FAERS Safety Report 16404727 (Version 1)
Quarter: 2019Q2

REPORT INFORMATION
  Report Type: Spontaneous
  Country: US (occurrence: US)
  Receive Date: 20190607
  Receipt Date: 20190607
  Transmission Date: 20190711
  Serious: No
  Sender: FDA-Public Use
  Company Number: US-009507513-1905USA011883

PATIENT
  Sex: Female

DRUGS (12)
  1. MENOPUR [Concomitant]
     Active Substance: FOLLITROPIN\LUTEINIZING HORMONE
  2. PREGNYL [Concomitant]
     Active Substance: CHORIOGONADOTROPIN ALFA
  3. ESTRADIOL. [Concomitant]
     Active Substance: ESTRADIOL
  4. PROGESTERONE. [Concomitant]
     Active Substance: PROGESTERONE
  5. PRIMACARE [Concomitant]
     Active Substance: ALPHA-TOCOPHEROL ACETATE\BIOTIN\CALCIUM ASCORBATE\CALCIUM CARBONATE\CHOLECALCIFEROL\FOLIC ACID\LINOLEIC ACID\MAGNESIUM OXIDE\NIACINAMIDE\OMEGA-3 FATTY ACIDS\POTASSIUM IODIDE\PYRIDOXINE\RIBOFLAVIN\ZINC
  6. GANIRELIX ACETATE INJECTION [Suspect]
     Active Substance: GANIRELIX ACETATE
     Indication: INFERTILITY FEMALE
     Dosage: 250 MICROGRAM, PRN (WHEN DIRECTED)
     Route: 058
     Dates: start: 20190313
  7. FOLLISTIM [Suspect]
     Active Substance: FOLLITROPIN
     Indication: INFERTILITY FEMALE
     Dosage: 450 UNITS, EVERY DAY
     Route: 058
     Dates: start: 20190313
  8. METFORMIN [Concomitant]
     Active Substance: METFORMIN HYDROCHLORIDE
  9. LABETALOL [Concomitant]
     Active Substance: LABETALOL\LABETALOL HYDROCHLORIDE
  10. MICROLET [Concomitant]
  11. CRINONE [Concomitant]
     Active Substance: PROGESTERONE
  12. HUMULIN NOS [Concomitant]
     Active Substance: INSULIN HUMAN

REACTIONS (1)
  - Diarrhoea [Not Recovered/Not Resolved]

NARRATIVE: CASE EVENT DATE: 2019
